FAERS Safety Report 8815558 (Version 1)
Quarter: 2012Q4

REPORT INFORMATION
  Report Type: 
  Country: ES (occurrence: ES)
  Receive Date: 20120928
  Receipt Date: 20120928
  Transmission Date: 20130627
  Serious: Yes (Other)
  Sender: FDA-Public Use
  Company Number: ES-009507513-1209ESP011319

PATIENT
  Age: 70 Year
  Sex: Male

DRUGS (5)
  1. ISENTRESS [Suspect]
     Indication: HIV INFECTION
     Dosage: 800 MG/ DIA
     Route: 048
     Dates: start: 20110325
  2. VIDEX EC [Suspect]
     Indication: HIV INFECTION
     Dosage: 400 MG/DIA
     Route: 048
     Dates: start: 20110325, end: 20120628
  3. PREZISTA [Suspect]
     Indication: HIV INFECTION
     Dosage: 1200 MG/DIA
     Route: 048
     Dates: start: 20110325
  4. NORVIR [Suspect]
     Indication: HIV INFECTION
     Dosage: 200 MG/DIA
     Route: 048
     Dates: start: 20110325
  5. LORAZEPAM [Suspect]
     Route: 048
     Dates: start: 20110325, end: 20120628

REACTIONS (3)
  - Headache [Recovering/Resolving]
  - Dizziness [Recovering/Resolving]
  - Vertigo [Recovering/Resolving]
